FAERS Safety Report 8043257-0 (Version None)
Quarter: 2012Q1

REPORT INFORMATION
  Report Type: 
  Country: None (occurrence: None)
  Receive Date: 20120112
  Receipt Date: 20120103
  Transmission Date: 20120608
  Serious: Yes (Hospitalization)
  Sender: FDA-Public Use
  Company Number: BR-ASTRAZENECA-2012SE00902

PATIENT
  Age: 88 Year
  Sex: Female

DRUGS (4)
  1. ATACAND HCT [Suspect]
     Dosage: 16/12.5 MG
     Route: 048
  2. ATACAND [Suspect]
     Route: 048
     Dates: start: 20110501, end: 20110101
  3. ATACAND [Suspect]
     Route: 048
     Dates: start: 20110101
  4. ATACAND [Suspect]
     Route: 048
     Dates: end: 20110501

REACTIONS (2)
  - CEREBROVASCULAR ACCIDENT [None]
  - BLOOD PRESSURE FLUCTUATION [None]
